FAERS Safety Report 14980719 (Version 1)
Quarter: 2018Q2

REPORT INFORMATION
  Report Type: Spontaneous
  Country: BR (occurrence: BR)
  Receive Date: 20180606
  Receipt Date: 20180606
  Transmission Date: 20180711
  Serious: Yes (Death)
  Sender: FDA-Public Use
  Company Number: BR-PFIZER INC-2018229558

PATIENT
  Age: 28 Year
  Sex: Female

DRUGS (4)
  1. DULOXETINE. [Suspect]
     Active Substance: DULOXETINE
     Indication: PAIN MANAGEMENT
     Dosage: UNK
  2. TRAMADOL. [Suspect]
     Active Substance: TRAMADOL
     Indication: PAIN MANAGEMENT
     Dosage: UNK
  3. PREGABALIN. [Suspect]
     Active Substance: PREGABALIN
     Indication: PAIN MANAGEMENT
     Dosage: UNK
  4. METHADONE [Suspect]
     Active Substance: METHADONE HYDROCHLORIDE
     Indication: PAIN MANAGEMENT
     Dosage: UNK

REACTIONS (1)
  - Drug ineffective [Fatal]
